FAERS Safety Report 7879014-5 (Version None)
Quarter: 2011Q4

REPORT INFORMATION
  Report Type: 
  Country: None (occurrence: None)
  Receive Date: 20111101
  Receipt Date: 20111024
  Transmission Date: 20120403
  Serious: Yes (Hospitalization)
  Sender: FDA-Public Use
  Company Number: PHHY2011AU71067

PATIENT
  Sex: Male

DRUGS (2)
  1. ACETAMINOPHEN [Suspect]
     Dosage: 50 TABS OF 500MG
  2. CLOZARIL [Suspect]
     Dosage: 650 MG
     Dates: start: 20100616

REACTIONS (2)
  - SUICIDE ATTEMPT [None]
  - OVERDOSE [None]
